FAERS Safety Report 12413780 (Version 1)
Quarter: 2016Q2

REPORT INFORMATION
  Report Type: Spontaneous
  Country: US (occurrence: US)
  Receive Date: 20160527
  Receipt Date: 20160527
  Transmission Date: 20160815
  Serious: No
  Sender: FDA-Public Use
  Company Number: US-SUPERNUS PHARMACEUTICALS, INC.-2016SUP00089

PATIENT
  Age: 27 Year
  Sex: Female
  Weight: 54.88 kg

DRUGS (3)
  1. FIORICET [Concomitant]
     Active Substance: ACETAMINOPHEN\BUTALBITAL\CAFFEINE
     Dosage: UNK
  2. TROKENDI XR [Suspect]
     Active Substance: TOPIRAMATE
     Indication: MIGRAINE
     Dosage: 200 MG, 1X/DAY
     Route: 048
     Dates: start: 201508
  3. NUVIGIL [Concomitant]
     Active Substance: ARMODAFINIL
     Dosage: UNK

REACTIONS (4)
  - Off label use [Not Recovered/Not Resolved]
  - Hyperacusis [Not Recovered/Not Resolved]
  - Tinnitus [Not Recovered/Not Resolved]
  - Migraine [Not Recovered/Not Resolved]

NARRATIVE: CASE EVENT DATE: 201508
